FAERS Safety Report 6671888-9 (Version None)
Quarter: 2010Q2

REPORT INFORMATION
  Report Type: 
  Country: None (occurrence: None)
  Receive Date: 20100407
  Receipt Date: 20100326
  Transmission Date: 20101027
  Serious: Yes (Hospitalization, Other)
  Sender: FDA-Public Use
  Company Number: BR-PFIZER INC-2010038921

PATIENT
  Age: 55 Year
  Sex: Female
  Weight: 69 kg

DRUGS (3)
  1. FRONTAL [Suspect]
     Indication: ANXIETY
     Dosage: HALF TABLET, UNKNOWN
     Route: 048
  2. FRONTAL [Suspect]
     Indication: DEPRESSION
     Dosage: 1 MG, 1X/DAY
     Route: 048
  3. CORUS [Concomitant]
     Indication: HYPERTENSION
     Dosage: 25 MG, UNK
     Dates: start: 20080101

REACTIONS (13)
  - APATHY [None]
  - DEPRESSION [None]
  - DIZZINESS [None]
  - FALL [None]
  - HEAD INJURY [None]
  - MEMORY IMPAIRMENT [None]
  - MOTOR DYSFUNCTION [None]
  - MUSCULAR WEAKNESS [None]
  - MUSCULOSKELETAL STIFFNESS [None]
  - POOR QUALITY SLEEP [None]
  - SENSATION OF HEAVINESS [None]
  - SOMNOLENCE [None]
  - WEIGHT DECREASED [None]
